FAERS Safety Report 14762765 (Version 3)
Quarter: 2018Q2

REPORT INFORMATION
  Report Type: Spontaneous
  Country: US (occurrence: US)
  Receive Date: 20180416
  Receipt Date: 20180427
  Transmission Date: 20180711
  Serious: No
  Sender: FDA-Public Use
  Company Number: US-PFIZER INC-2018152891

PATIENT
  Age: 57 Year
  Sex: Female

DRUGS (5)
  1. PLAQUENIL [Suspect]
     Active Substance: HYDROXYCHLOROQUINE SULFATE
     Dosage: UNK
     Dates: start: 1996, end: 200211
  2. DOXYCYCLINE HYCLATE. [Suspect]
     Active Substance: DOXYCYCLINE HYCLATE
     Dosage: UNK
     Dates: start: 1996, end: 200211
  3. METHOTREXATE SODIUM. [Suspect]
     Active Substance: METHOTREXATE SODIUM
     Dosage: UNK
     Dates: start: 1996, end: 200211
  4. ARAVA [Suspect]
     Active Substance: LEFLUNOMIDE
     Dosage: UNK
     Dates: start: 1996, end: 200211
  5. CYCLOSPORIN [Suspect]
     Active Substance: CYCLOSPORINE
     Dosage: UNK
     Dates: start: 1996, end: 200211

REACTIONS (4)
  - Hepatic enzyme increased [Unknown]
  - Tongue oedema [Unknown]
  - Abdominal discomfort [Unknown]
  - Drug ineffective [Unknown]
